FAERS Safety Report 6798131-4 (Version None)
Quarter: 2010Q2

REPORT INFORMATION
  Report Type: 
  Country: None (occurrence: None)
  Receive Date: 20100623
  Receipt Date: 20100610
  Transmission Date: 20101027
  Serious: Yes (Other)
  Sender: FDA-Public Use
  Company Number: DSJ-2010-09558

PATIENT
  Age: 69 Year
  Sex: Female
  Weight: 55.8 kg

DRUGS (3)
  1. OLMESARTAN MEDOXOMIL [Suspect]
     Indication: ESSENTIAL HYPERTENSION
     Dosage: 20 MG (20 MG, 1 IN 1 D), PER ORAL
     Route: 048
     Dates: start: 20100305, end: 20100312
  2. BLOPRESS (CANDESARTAN [Concomitant]
  3. CALBLOCK AZELNIDIPINE [Concomitant]

REACTIONS (1)
  - DRUG ERUPTION [None]
